FAERS Safety Report 7064745-X (Version None)
Quarter: 2010Q4

REPORT INFORMATION
  Report Type: 
  Country: None (occurrence: None)
  Receive Date: 20101027
  Receipt Date: 19790309
  Transmission Date: 20110411
  Serious: Yes (Death, Life-Threatening, Hospitalization)
  Sender: FDA-Public Use
  Company Number: DE-ROCHE-790307945002

PATIENT
  Age: 62 Year
  Sex: Male

DRUGS (1)
  1. RIVOTRIL [Suspect]
     Indication: STATUS EPILEPTICUS
     Route: 042

REACTIONS (3)
  - APNOEA [None]
  - CEREBRAL HAEMORRHAGE [None]
  - CYANOSIS [None]
